FAERS Safety Report 7825135-2 (Version None)
Quarter: 2011Q4

REPORT INFORMATION
  Report Type: 
  Country: None (occurrence: None)
  Receive Date: 20111019
  Receipt Date: 20111007
  Transmission Date: 20120403
  Serious: Yes (Hospitalization)
  Sender: FDA-Public Use
  Company Number: JP-SANOFI-AVENTIS-2011SA063666

PATIENT
  Age: 60 Year
  Sex: Male

DRUGS (4)
  1. ASPIRIN [Suspect]
     Route: 048
  2. ALL OTHER THERAPEUTIC PRODUCTS [Suspect]
     Route: 048
  3. LANSOPRAZOLE [Concomitant]
     Route: 048
  4. PLAVIX [Suspect]
     Indication: PERCUTANEOUS CORONARY INTERVENTION
     Route: 048
     Dates: start: 20080301

REACTIONS (1)
  - MESENTERIC PANNICULITIS [None]
